FAERS Safety Report 22388923 (Version 3)
Quarter: 2023Q2

REPORT INFORMATION
  Report Type: Spontaneous
  Country: US (occurrence: US)
  Receive Date: 20230531
  Receipt Date: 20230619
  Transmission Date: 20230722
  Serious: Yes (Hospitalization, Other)
  Sender: FDA-Public Use
  Company Number: US-INTRA-CELLULAR THERAPIES, INC.-2023ICT00606

PATIENT
  Age: 17 Year
  Sex: Female
  Weight: 51.701 kg

DRUGS (7)
  1. CAPLYTA [Suspect]
     Active Substance: LUMATEPERONE
     Indication: Bipolar disorder
     Dosage: 42 MG, 1X/DAY
     Route: 048
     Dates: start: 202212, end: 2023
  2. CAPLYTA [Suspect]
     Active Substance: LUMATEPERONE
     Indication: Bipolar disorder
     Dosage: 21 MG, 1X/DAY
     Route: 048
     Dates: start: 2023, end: 202305
  3. JORNAY PM EXTENDED-RELEASE [Suspect]
     Active Substance: METHYLPHENIDATE HYDROCHLORIDE
     Indication: Attention deficit hyperactivity disorder
     Dosage: UNK
     Dates: end: 202305
  4. GUANFACINE [Suspect]
     Active Substance: GUANFACINE
     Indication: Dystonia
     Dosage: UNK
     Dates: end: 202305
  5. UNSPECIFIED ADHD MEDS [Concomitant]
  6. UNSPECIFIED INGREDIENT [Concomitant]
     Active Substance: UNSPECIFIED INGREDIENT
  7. UNSPECIFIED MEDICATIONS FOR MOOD [Concomitant]

REACTIONS (15)
  - Asthenia [Recovered/Resolved]
  - Gait inability [Recovered/Resolved]
  - Pain in extremity [Recovered/Resolved]
  - Coordination abnormal [Recovered/Resolved]
  - Neuromyopathy [Recovered/Resolved]
  - Tic [Recovered/Resolved]
  - Off label use [Recovered/Resolved]
  - Nervous system disorder [Unknown]
  - Depression [Unknown]
  - Treatment noncompliance [Unknown]
  - Balance disorder [Recovered/Resolved]
  - Fall [Recovered/Resolved]
  - Cognitive disorder [Recovered/Resolved]
  - Dystonia [Recovered/Resolved]
  - Somnolence [Recovered/Resolved]

NARRATIVE: CASE EVENT DATE: 20221201
